FAERS Safety Report 24873703 (Version 1)
Quarter: 2025Q1

REPORT INFORMATION
  Report Type: Spontaneous
  Country: CA (occurrence: CA)
  Receive Date: 20250122
  Receipt Date: 20250122
  Transmission Date: 20250409
  Serious: Yes (Hospitalization)
  Sender: MYLAN
  Company Number: CA-MYLANLABS-2025M1005023

PATIENT
  Age: 29 Year
  Sex: Male
  Weight: 96 kg

DRUGS (2)
  1. CLOZAPINE [Suspect]
     Active Substance: CLOZAPINE
     Indication: Schizophrenia
     Dosage: 100 MILLIGRAM, QD
     Route: 048
  2. CLOZAPINE [Suspect]
     Active Substance: CLOZAPINE
     Dosage: 25 MILLIGRAM, QD
     Route: 048

REACTIONS (10)
  - SARS-CoV-2 test positive [Recovering/Resolving]
  - Magnetic resonance imaging abnormal [Recovering/Resolving]
  - C-reactive protein increased [Recovering/Resolving]
  - Cough [Recovering/Resolving]
  - Myopericarditis [Recovering/Resolving]
  - Troponin increased [Recovering/Resolving]
  - Chest pain [Recovering/Resolving]
  - Dyspnoea [Recovering/Resolving]
  - Eosinophil count increased [Recovering/Resolving]
  - Fatigue [Recovering/Resolving]
